FAERS Safety Report 15131559 (Version 4)
Quarter: 2019Q3

REPORT INFORMATION
  Report Type: Spontaneous
  Country: JP (occurrence: JP)
  Receive Date: 20180711
  Receipt Date: 20190808
  Transmission Date: 20191004
  Serious: Yes (Other)
  Sender: FDA-Public Use
  Company Number: JP-BAUSCH-BL-2018-018937

PATIENT
  Age: 80 Year
  Sex: Male

DRUGS (19)
  1. LUCENTIS [Suspect]
     Active Substance: RANIBIZUMAB
     Dosage: INTRAVITREAL IN
     Route: 031
  2. EYLEA [Suspect]
     Active Substance: AFLIBERCEPT
     Route: 065
  3. EYLEA [Suspect]
     Active Substance: AFLIBERCEPT
     Route: 065
  4. LUCENTIS [Suspect]
     Active Substance: RANIBIZUMAB
     Dosage: INTRAVITREAL IN
     Route: 031
  5. EYLEA [Suspect]
     Active Substance: AFLIBERCEPT
     Route: 065
  6. LUCENTIS [Suspect]
     Active Substance: RANIBIZUMAB
     Dosage: INTRAVITREAL IN
     Route: 031
  7. LUCENTIS [Suspect]
     Active Substance: RANIBIZUMAB
     Dosage: INTRAVITREAL IN
     Route: 031
  8. LUCENTIS [Suspect]
     Active Substance: RANIBIZUMAB
     Dosage: INTRAVITREAL IN
     Route: 031
  9. EYLEA [Suspect]
     Active Substance: AFLIBERCEPT
     Route: 065
  10. LUCENTIS [Suspect]
     Active Substance: RANIBIZUMAB
     Indication: AGE-RELATED MACULAR DEGENERATION
     Route: 031
  11. EYLEA [Suspect]
     Active Substance: AFLIBERCEPT
     Indication: AGE-RELATED MACULAR DEGENERATION
     Route: 065
  12. EYLEA [Suspect]
     Active Substance: AFLIBERCEPT
     Route: 065
  13. VISUDYNE [Suspect]
     Active Substance: VERTEPORFIN
     Indication: AGE-RELATED MACULAR DEGENERATION
     Route: 042
  14. LUCENTIS [Suspect]
     Active Substance: RANIBIZUMAB
     Dosage: INTRAVITREAL IN
     Route: 031
  15. LUCENTIS [Suspect]
     Active Substance: RANIBIZUMAB
     Route: 031
  16. EYLEA [Suspect]
     Active Substance: AFLIBERCEPT
     Route: 065
  17. LUCENTIS [Suspect]
     Active Substance: RANIBIZUMAB
     Dosage: INTRAVITREAL IN
     Route: 031
  18. EYLEA [Suspect]
     Active Substance: AFLIBERCEPT
     Route: 065
  19. EYLEA [Suspect]
     Active Substance: AFLIBERCEPT
     Route: 065

REACTIONS (2)
  - Disease progression [Not Recovered/Not Resolved]
  - Visual acuity reduced [Unknown]
